FAERS Safety Report 15629196 (Version 1)
Quarter: 2018Q4

REPORT INFORMATION
  Report Type: Spontaneous
  Country: BE (occurrence: BE)
  Receive Date: 20181116
  Receipt Date: 20181116
  Transmission Date: 20190205
  Serious: Yes (Death)
  Sender: FDA-Public Use
  Company Number: BE-B.I. PHARMACEUTICALS,INC./RIDGEFIELD-2018-BI-050467

PATIENT
  Age: 71 Year
  Sex: Male

DRUGS (1)
  1. OFEV [Suspect]
     Active Substance: NINTEDANIB
     Indication: PRODUCT USED FOR UNKNOWN INDICATION
     Route: 065

REACTIONS (4)
  - Hepatic function abnormal [Recovered/Resolved]
  - Diarrhoea [Unknown]
  - Idiopathic pulmonary fibrosis [Fatal]
  - Decreased appetite [Unknown]

NARRATIVE: CASE EVENT DATE: 201707
